FAERS Safety Report 6478859-6 (Version None)
Quarter: 2009Q4

REPORT INFORMATION
  Report Type: 
  Country: None (occurrence: None)
  Receive Date: 20091207
  Receipt Date: 20091203
  Transmission Date: 20100525
  Serious: Yes (Death)
  Sender: FDA-Public Use
  Company Number: US-SANOFI-AVENTIS-A03200903869

PATIENT
  Age: 85 Year
  Sex: Male
  Weight: 77.1 kg

DRUGS (11)
  1. CLOPIDOGREL BISULFATE [Suspect]
     Dosage: UNIT DOSE: 75 MG
     Route: 048
     Dates: start: 20090526
  2. CLOPIDOGREL BISULFATE [Suspect]
     Dosage: UNIT DOSE: 75 MG
     Route: 048
     Dates: start: 20090528, end: 20090630
  3. ASPIRIN [Suspect]
     Indication: DRUG USE FOR UNKNOWN INDICATION
     Dosage: UNIT DOSE: 81 MG
     Route: 048
  4. COUMADIN [Suspect]
     Indication: ATRIAL FIBRILLATION
     Dosage: 5MG FOR 6 DAYS, 2.5MG ON SUNDAYS
     Route: 048
  5. PROSCAR [Concomitant]
     Route: 065
  6. MULTI-VITAMINS [Concomitant]
     Route: 065
  7. POTASSIUM CHLORIDE [Concomitant]
     Route: 065
  8. TIAZAC [Concomitant]
     Route: 065
  9. DOXAZOSIN [Concomitant]
     Route: 065
  10. LASIX [Concomitant]
     Route: 065
  11. NITROGLYCERIN ^SLOVAKOFARMA^ [Concomitant]
     Route: 065

REACTIONS (5)
  - ASTHENIA [None]
  - CONFUSIONAL STATE [None]
  - PNEUMONIA ASPIRATION [None]
  - PYREXIA [None]
  - SUBDURAL HAEMATOMA [None]
